FAERS Safety Report 22232326 (Version 1)
Quarter: 2023Q2

REPORT INFORMATION
  Report Type: Spontaneous
  Country: US (occurrence: US)
  Receive Date: 20230420
  Receipt Date: 20230420
  Transmission Date: 20230722
  Serious: Yes (Other)
  Sender: FDA-Public Use
  Company Number: US-SANOFI-01578278

PATIENT
  Sex: Female

DRUGS (1)
  1. ALLEGRA-D 24 HOUR [Suspect]
     Active Substance: FEXOFENADINE HYDROCHLORIDE\PSEUDOEPHEDRINE HYDROCHLORIDE
     Indication: Product used for unknown indication
     Dosage: 1 DF, TOTAL; (1 DF 1X)
     Route: 065
     Dates: start: 20230415, end: 20230415

REACTIONS (2)
  - Myocardial infarction [Unknown]
  - Insomnia [Unknown]

NARRATIVE: CASE EVENT DATE: 20230415
